FAERS Safety Report 10525722 (Version 16)
Quarter: 2015Q3

REPORT INFORMATION
  Report Type: Report from Study
  Country: CA (occurrence: CA)
  Receive Date: 20141017
  Receipt Date: 20150819
  Transmission Date: 20151125
  Serious: Yes (Hospitalization)
  Sender: FDA-Public Use
  Company Number: CA-ROCHE-1301793

PATIENT
  Age: 33 Year
  Sex: Female
  Weight: 104.5 kg

DRUGS (10)
  1. PERJETA [Suspect]
     Active Substance: PERTUZUMAB
     Route: 042
     Dates: start: 20141217
  2. DESYREL [Concomitant]
     Active Substance: TRAZODONE HYDROCHLORIDE
     Route: 065
     Dates: start: 201306
  3. TAXOL [Suspect]
     Active Substance: PACLITAXEL
     Indication: PRODUCT USED FOR UNKNOWN INDICATION
     Dosage: UNKNOWN DOSE
     Route: 065
     Dates: start: 201306
  4. PERJETA [Suspect]
     Active Substance: PERTUZUMAB
     Indication: HER-2 POSITIVE BREAST CANCER
     Dosage: LOADING DOSE
     Route: 042
     Dates: start: 20130812
  5. DECADRON [Concomitant]
     Active Substance: DEXAMETHASONE
  6. PERJETA [Suspect]
     Active Substance: PERTUZUMAB
     Dosage: MAINTENANCE DOSE.
     Route: 042
     Dates: start: 20130903
  7. PERJETA [Suspect]
     Active Substance: PERTUZUMAB
     Route: 042
     Dates: start: 20141126
  8. TAXOTERE [Suspect]
     Active Substance: DOCETAXEL
     Indication: HER-2 POSITIVE BREAST CANCER
     Route: 042
     Dates: start: 201306
  9. EFFEXOR [Concomitant]
     Active Substance: VENLAFAXINE HYDROCHLORIDE
     Route: 065
     Dates: start: 201306
  10. HERCEPTIN [Suspect]
     Active Substance: TRASTUZUMAB
     Indication: HER-2 POSITIVE BREAST CANCER
     Route: 042
     Dates: start: 201104

REACTIONS (20)
  - Drug dose omission [Unknown]
  - Cellulitis [Recovered/Resolved]
  - Weight decreased [Unknown]
  - Dry mouth [Not Recovered/Not Resolved]
  - Paraesthesia [Not Recovered/Not Resolved]
  - Dental caries [Unknown]
  - Constipation [Not Recovered/Not Resolved]
  - Seizure [Unknown]
  - Heart rate irregular [Unknown]
  - Malignant neoplasm progression [Unknown]
  - Heart rate increased [Unknown]
  - Heart rate increased [Unknown]
  - Diarrhoea [Recovering/Resolving]
  - Infusion related reaction [Unknown]
  - Blood pressure increased [Unknown]
  - Dyspepsia [Unknown]
  - Skin lesion [Recovered/Resolved]
  - Rhinorrhoea [Unknown]
  - Body temperature decreased [Unknown]
  - Sinusitis [Unknown]

NARRATIVE: CASE EVENT DATE: 2013
